FAERS Safety Report 24837865 (Version 2)
Quarter: 2025Q3

REPORT INFORMATION
  Report Type: Spontaneous
  Country: EU (occurrence: EU)
  Receive Date: 20250113
  Receipt Date: 20250822
  Transmission Date: 20251021
  Serious: Yes (Death, Hospitalization)
  Sender: TEVA
  Company Number: EU-TEVA-VS-3285532

PATIENT
  Age: 21 Year
  Sex: Male

DRUGS (5)
  1. TRAMADOL [Suspect]
     Active Substance: TRAMADOL
     Indication: Drug abuse
     Route: 065
  2. SERTRALINE [Concomitant]
     Active Substance: SERTRALINE HYDROCHLORIDE
     Indication: Product used for unknown indication
     Route: 065
  3. PROGESTERONE [Concomitant]
     Active Substance: PROGESTERONE
     Indication: Hormone therapy
     Route: 065
  4. ESTROGENS [Concomitant]
     Active Substance: ESTROGENS
     Indication: Hormone therapy
     Route: 065
  5. ALPRAZOLAM [Concomitant]
     Active Substance: ALPRAZOLAM
     Indication: Product used for unknown indication
     Route: 065

REACTIONS (9)
  - Hypoglycaemia [Fatal]
  - Respiratory failure [Fatal]
  - Mydriasis [Fatal]
  - Cardiac failure [Fatal]
  - Drug abuse [Fatal]
  - Cardio-respiratory arrest [Fatal]
  - Hyperlactacidaemia [Fatal]
  - Hypoxic-ischaemic encephalopathy [Fatal]
  - Acidosis [Fatal]
